FAERS Safety Report 8277286 (Version 3)
Quarter: 2013Q2

REPORT INFORMATION
  Report Type: Spontaneous
  Country: FR (occurrence: FR)
  Receive Date: 20111207
  Receipt Date: 20130619
  Transmission Date: 20140414
  Serious: Yes (Hospitalization)
  Sender: FDA-Public Use
  Company Number: FR-BRISTOL-MYERS SQUIBB COMPANY-16256299

PATIENT
  Age: 54 Year
  Sex: Male

DRUGS (4)
  1. REYATAZ CAPS 300 MG [Suspect]
     Indication: HIV INFECTION
     Dosage: 1DF:1 CAP
     Route: 048
     Dates: start: 20091228
  2. NORVIR [Suspect]
     Indication: HIV INFECTION
     Dosage: 1DF:1 CAP?NORVIR 100 MG
     Route: 048
     Dates: start: 20091228
  3. TRUVADA [Suspect]
     Indication: HIV INFECTION
     Dosage: 1DF:1TABLET?TRUVADA  200 MG/245 MG
     Route: 048
     Dates: start: 20060105
  4. CHLORHEXIDINE [Concomitant]
     Route: 061
     Dates: start: 20100308

REACTIONS (1)
  - Renal colic [Recovered/Resolved]
